FAERS Safety Report 9374415 (Version 1)
Quarter: 2013Q2

REPORT INFORMATION
  Report Type: Spontaneous
  Country: FR (occurrence: FR)
  Receive Date: 20130628
  Receipt Date: 20130628
  Transmission Date: 20140414
  Serious: Yes (Hospitalization)
  Sender: FDA-Public Use
  Company Number: PHHY2013FR066556

PATIENT
  Age: 78 Year
  Sex: Male

DRUGS (7)
  1. EXFORGE [Suspect]
     Dosage: 1 DF, UNK (160 MG VALS AND 5 MG AMLO)
     Route: 048
     Dates: start: 200909, end: 201006
  2. GLUCOR [Concomitant]
  3. STAGID [Concomitant]
  4. NICERGOLINE [Concomitant]
  5. KARDEGIC [Concomitant]
  6. SERETIDE [Concomitant]
  7. LORAZEPAM [Concomitant]

REACTIONS (2)
  - Dermatitis psoriasiform [Recovering/Resolving]
  - Hyperkeratosis [Recovering/Resolving]
